FAERS Safety Report 6639922-X (Version None)
Quarter: 2010Q1

REPORT INFORMATION
  Report Type: 
  Country: None (occurrence: None)
  Receive Date: 20100315
  Receipt Date: 20100226
  Transmission Date: 20100710
  Serious: Yes (Hospitalization)
  Sender: FDA-Public Use
  Company Number: 007710

PATIENT
  Sex: Female

DRUGS (2)
  1. CERTOLIZUMAB PEGOL (CERTOLIZUMAB PEGOL) [Suspect]
     Indication: RHEUMATOID ARTHRITIS
     Dosage: 400 MG 1X MONTH, 870-IFL-01587-014 SUBCUTANEOUS , (400 MG 1XMONTH SUBCUTANEOUS)
     Route: 058
     Dates: start: 20030314, end: 20030801
  2. CERTOLIZUMAB PEGOL (CERTOLIZUMAB PEGOL) [Suspect]
     Indication: RHEUMATOID ARTHRITIS
     Dosage: 400 MG 1X MONTH, 870-IFL-01587-014 SUBCUTANEOUS , (400 MG 1XMONTH SUBCUTANEOUS)
     Route: 058
     Dates: start: 20030828

REACTIONS (11)
  - ABSCESS INTESTINAL [None]
  - ARTHRITIS INFECTIVE [None]
  - BLOOD POTASSIUM DECREASED [None]
  - CHEST PAIN [None]
  - DIVERTICULITIS [None]
  - GASTROINTESTINAL HAEMORRHAGE [None]
  - HAEMOGLOBIN DECREASED [None]
  - HIATUS HERNIA [None]
  - OSTEOARTHRITIS [None]
  - PROTHROMBIN TIME PROLONGED [None]
  - VAGINAL FISTULA [None]
